FAERS Safety Report 9484138 (Version 1)
Quarter: 2013Q3

REPORT INFORMATION
  Report Type: Spontaneous
  Country: ES (occurrence: ES)
  Receive Date: 20130828
  Receipt Date: 20130828
  Transmission Date: 20140515
  Serious: Yes (Hospitalization)
  Sender: FDA-Public Use
  Company Number: ES-B.I. PHARMACEUTICALS,INC./RIDGEFIELD-2013-ES-00503ES

PATIENT
  Age: 78 Year
  Sex: Female

DRUGS (6)
  1. MICARDIS [Suspect]
     Indication: HYPERTENSION
     Dosage: 80 MG
     Route: 048
  2. ALDACTONE [Suspect]
     Indication: HYPERTENSION
     Dosage: 25 MG
     Route: 048
     Dates: start: 20130517
  3. SEGURIL [Suspect]
     Indication: RENAL FAILURE CHRONIC
     Dosage: 40 MG
     Route: 048
  4. DACORTIN [Concomitant]
     Indication: RENAL FAILURE CHRONIC
     Dosage: 5 MG
     Route: 048
  5. SANDIMMUN NEORAL [Concomitant]
     Indication: RENAL TRANSPLANT
     Dosage: 100 MG
     Route: 048
  6. XARELTO [Concomitant]
     Indication: ATRIAL FIBRILLATION
     Dosage: 20 MG
     Route: 048
     Dates: start: 20130517

REACTIONS (4)
  - Atrioventricular block [Recovered/Resolved]
  - Hyperkalaemia [Recovered/Resolved]
  - Renal failure acute [Recovered/Resolved]
  - Drug interaction [Recovered/Resolved]
